FAERS Safety Report 5398423-X (Version None)
Quarter: 2007Q3

REPORT INFORMATION
  Report Type: 
  Country: None (occurrence: None)
  Receive Date: 20070726
  Receipt Date: 20070307
  Transmission Date: 20080115
  Serious: No
  Sender: FDA-Public Use
  Company Number: US-AMGEN-KDL214203

PATIENT
  Sex: Male

DRUGS (7)
  1. PROCRIT [Suspect]
     Indication: RENAL FAILURE CHRONIC
     Route: 058
     Dates: start: 20070302
  2. ZOCOR [Concomitant]
  3. DILANTIN KAPSEAL [Concomitant]
  4. LASIX [Concomitant]
  5. CARDIZEM [Concomitant]
  6. VALIUM [Concomitant]
  7. RISPERDAL [Concomitant]

REACTIONS (1)
  - PYREXIA [None]
